FAERS Safety Report 16493199 (Version 2)
Quarter: 2021Q3

REPORT INFORMATION
  Report Type: Report from Study
  Country: US (occurrence: US)
  Receive Date: 20190628
  Receipt Date: 20210822
  Transmission Date: 20211014
  Serious: Yes (Other)
  Sender: FDA-Public Use
  Company Number: US-BIOGEN-2019BI00756496

PATIENT
  Age: 43 Year
  Sex: Female

DRUGS (3)
  1. TECFIDERA [Suspect]
     Active Substance: DIMETHYL FUMARATE
     Indication: MULTIPLE SCLEROSIS
     Route: 065
     Dates: start: 20190603
  2. TECFIDERA [Suspect]
     Active Substance: DIMETHYL FUMARATE
     Dosage: TAKE ONE 120 MG CAPSULE TWICE A DAY FOR 7 DAYS, THEN TAKE ONE 240 MG CAPSULE TWICE A DAY FOR 23 DAYS
     Route: 048
  3. TECFIDERA [Suspect]
     Active Substance: DIMETHYL FUMARATE
     Dosage: TAKE ONE 120 MG CAPSULE TWICE A DAY FOR 7 DAYS, THEN TAKE ONE 240 MG CAPSULE TWICE A DAY FOR 23 DAYS
     Route: 048
     Dates: start: 20190604

REACTIONS (2)
  - Colitis ulcerative [Unknown]
  - Diarrhoea [Unknown]

NARRATIVE: CASE EVENT DATE: 201906
